FAERS Safety Report 4841393-0 (Version None)
Quarter: 2005Q4

REPORT INFORMATION
  Report Type: 
  Country: None (occurrence: None)
  Receive Date: 20051130
  Receipt Date: 20051121
  Transmission Date: 20060501
  Serious: Yes (Other)
  Sender: FDA-Public Use
  Company Number: US-MERCK-0511USA03798

PATIENT
  Sex: Male

DRUGS (1)
  1. VIOXX [Suspect]
     Route: 048
     Dates: start: 20021122, end: 20021202

REACTIONS (3)
  - ANHEDONIA [None]
  - MENTAL DISORDER [None]
  - MYOCARDIAL INFARCTION [None]
